FAERS Safety Report 16089975 (Version 4)
Quarter: 2020Q2

REPORT INFORMATION
  Report Type: Spontaneous
  Country: US (occurrence: US)
  Receive Date: 20190319
  Receipt Date: 20200604
  Transmission Date: 20200713
  Serious: Yes (Hospitalization, Disabling)
  Sender: FDA-Public Use
  Company Number: US-SA-2019SA069072

PATIENT

DRUGS (1)
  1. AUBAGIO [Suspect]
     Active Substance: TERIFLUNOMIDE
     Indication: MULTIPLE SCLEROSIS
     Dosage: 14 MG, QD
     Route: 048
     Dates: start: 20180111

REACTIONS (5)
  - Bedridden [Unknown]
  - Memory impairment [Unknown]
  - Agitation [Unknown]
  - Throat tightness [Unknown]
  - Speech disorder [Unknown]

NARRATIVE: CASE EVENT DATE: 20190810
